FAERS Safety Report 9826032 (Version 1)
Quarter: 2013Q4

REPORT INFORMATION
  Report Type: Spontaneous
  Country: US (occurrence: None)
  Receive Date: 20131104
  Receipt Date: 20131104
  Transmission Date: 20140711
  Serious: Yes (Other)
  Sender: FDA-Public Use
  Company Number: 1000047989

PATIENT
  Age: 56 Year
  Sex: Female
  Weight: 81.6 kg

DRUGS (6)
  1. DALIRESP [Suspect]
     Indication: CHRONIC OBSTRUCTIVE PULMONARY DISEASE
     Route: 048
     Dates: start: 20130813, end: 20130820
  2. PROVENTIL (ALBUTEROL) [Concomitant]
  3. ATORVASTATIN (IPRATROPIUIM BROMIDE) [Concomitant]
  4. NEUTROPIN (GABAPENTIN) [Concomitant]
  5. MOBIC (MELOXICAM) [Concomitant]
  6. HERCEPTIN (TRASTUZUMAB) [Concomitant]

REACTIONS (4)
  - Weight decreased [None]
  - Headache [None]
  - Insomnia [None]
  - Mood swings [None]
